FAERS Safety Report 4452598-5 (Version None)
Quarter: 2004Q3

REPORT INFORMATION
  Report Type: 
  Country: None (occurrence: None)
  Receive Date: 20040916
  Receipt Date: 20040902
  Transmission Date: 20050211
  Serious: Yes (Other)
  Sender: FDA-Public Use
  Company Number: 2004061630

PATIENT
  Age: 41 Year
  Sex: Male

DRUGS (2)
  1. SULPERAZON (CEFOPERAZONE, SULBACTAM) [Suspect]
     Indication: ILL-DEFINED DISORDER
     Dates: end: 20040721
  2. ANTIBIOTICS (ANTIBIOTICS) [Suspect]
     Indication: ILL-DEFINED DISORDER

REACTIONS (5)
  - BLOOD PRESSURE DECREASED [None]
  - HEART RATE INCREASED [None]
  - NAUSEA [None]
  - PERIPHERAL COLDNESS [None]
  - VOMITING [None]
